FAERS Safety Report 4683371-0 (Version None)
Quarter: 2005Q2

REPORT INFORMATION
  Report Type: 
  Country: None (occurrence: None)
  Receive Date: 20050606
  Receipt Date: 20050606
  Transmission Date: 20051028
  Serious: Yes (Hospitalization)
  Sender: FDA-Public Use
  Company Number: None

PATIENT
  Age: 54 Year
  Sex: Male
  Weight: 121.3 kg

DRUGS (2)
  1. ZOSYN [Suspect]
     Indication: INFECTION
     Dosage: 4.5 MG Q8H INTRAVENOU
     Route: 042
     Dates: start: 20050214, end: 20050315
  2. TOBRAMYCIN [Suspect]
     Indication: INFECTION
     Dosage: 500 MG DAILY INTRAVENOU
     Route: 042
     Dates: start: 20050214, end: 20050315

REACTIONS (3)
  - DEHYDRATION [None]
  - NEUTROPENIA [None]
  - RENAL FAILURE ACUTE [None]
